FAERS Safety Report 24912802 (Version 1)
Quarter: 2025Q1

REPORT INFORMATION
  Report Type: Report from Study
  Country: US (occurrence: US)
  Receive Date: 20250131
  Receipt Date: 20250131
  Transmission Date: 20250409
  Serious: Yes (Hospitalization)
  Sender: ABBVIE
  Company Number: US-ABBVIE-6105421

PATIENT
  Age: 66 Year
  Sex: Male
  Weight: 67.132 kg

DRUGS (6)
  1. VENCLEXTA [Suspect]
     Active Substance: VENETOCLAX
     Indication: Chronic lymphocytic leukaemia
     Route: 048
     Dates: start: 2024
  2. VENCLEXTA [Suspect]
     Active Substance: VENETOCLAX
     Indication: Chronic lymphocytic leukaemia
     Route: 048
     Dates: end: 202412
  3. RITUXAN [Suspect]
     Active Substance: RITUXIMAB
     Indication: Chronic lymphocytic leukaemia
     Route: 042
     Dates: start: 2021
  4. MOTRIN [Concomitant]
     Active Substance: IBUPROFEN
     Indication: Product used for unknown indication
  5. TYLENOL [Concomitant]
     Active Substance: ACETAMINOPHEN
     Indication: Product used for unknown indication
  6. MORPHINE [Concomitant]
     Active Substance: MORPHINE
     Indication: Product used for unknown indication

REACTIONS (20)
  - Rib fracture [Unknown]
  - Rib fracture [Recovering/Resolving]
  - Face injury [Unknown]
  - Pain [Not Recovered/Not Resolved]
  - Nodule [Not Recovered/Not Resolved]
  - Splenic rupture [Recovered/Resolved]
  - Brain abscess [Recovered/Resolved]
  - Memory impairment [Recovering/Resolving]
  - Gait disturbance [Recovering/Resolving]
  - Chronic lymphocytic leukaemia recurrent [Not Recovered/Not Resolved]
  - Skull fracture [Unknown]
  - Immunodeficiency [Unknown]
  - Road traffic accident [Unknown]
  - Upper limb fracture [Recovering/Resolving]
  - Spinal fracture [Unknown]
  - Contusion [Unknown]
  - Cyanosis [Unknown]
  - Eye contusion [Unknown]
  - Scapula fracture [Unknown]
  - Fall [Recovering/Resolving]

NARRATIVE: CASE EVENT DATE: 20240101
